FAERS Safety Report 23090503 (Version 2)
Quarter: 2023Q4

REPORT INFORMATION
  Report Type: Spontaneous
  Country: US (occurrence: US)
  Receive Date: 20231020
  Receipt Date: 20231026
  Transmission Date: 20240109
  Serious: Yes (Hospitalization)
  Sender: FDA-Public Use
  Company Number: US-PFIZER INC-PV202300172076

PATIENT
  Age: 50 Year
  Sex: Female

DRUGS (1)
  1. IBRANCE [Suspect]
     Active Substance: PALBOCICLIB
     Dosage: 125 MG
     Dates: start: 20230929, end: 20231014

REACTIONS (6)
  - Oesophagitis [Unknown]
  - Dysphagia [Unknown]
  - Dehydration [Unknown]
  - Odynophagia [Unknown]
  - Pharyngeal disorder [Unknown]
  - Pain [Unknown]
